FAERS Safety Report 21651446 (Version 1)
Quarter: 2022Q4

REPORT INFORMATION
  Report Type: Spontaneous
  Country: US (occurrence: US)
  Receive Date: 20221128
  Receipt Date: 20221128
  Transmission Date: 20230113
  Serious: No
  Sender: FDA-Public Use
  Company Number: US-AMGEN-USASP2022201734

PATIENT

DRUGS (2)
  1. MVASI [Suspect]
     Active Substance: BEVACIZUMAB-AWWB
     Indication: Product used for unknown indication
     Dosage: 300 MILLIGRAM (3 VIALS X 100 MG )
     Route: 065
  2. MVASI [Suspect]
     Active Substance: BEVACIZUMAB-AWWB
     Dosage: 400 MILLIGRAM (1 VIALS X 400 MG )
     Route: 065

REACTIONS (1)
  - Epistaxis [Unknown]
